FAERS Safety Report 8181277-6 (Version None)
Quarter: 2012Q1

REPORT INFORMATION
  Report Type: 
  Country: None (occurrence: None)
  Receive Date: 20120302
  Receipt Date: 20120227
  Transmission Date: 20120608
  Serious: Yes (Hospitalization, Other)
  Sender: FDA-Public Use
  Company Number: NO-PFIZER INC-2012043001

PATIENT
  Age: 31 Year
  Sex: Male

DRUGS (3)
  1. XANAX [Suspect]
     Indication: PANIC DISORDER
     Dosage: UNK
     Dates: start: 20100201, end: 20100101
  2. FLUOXETINE HCL [Suspect]
     Indication: PANIC DISORDER
     Dosage: UNK
     Dates: start: 20100201, end: 20100101
  3. VALIUM [Suspect]
     Indication: PANIC DISORDER
     Dosage: UNK
     Dates: start: 20100201, end: 20100101

REACTIONS (8)
  - WITHDRAWAL SYNDROME [None]
  - PHOTOPHOBIA [None]
  - FATIGUE [None]
  - MUSCLE SPASMS [None]
  - FUNGAL INFECTION [None]
  - INSOMNIA [None]
  - ABDOMINAL PAIN [None]
  - ACTIVITIES OF DAILY LIVING IMPAIRED [None]
